FAERS Safety Report 5688704-4 (Version None)
Quarter: 2008Q1

REPORT INFORMATION
  Report Type: 
  Country: None (occurrence: None)
  Receive Date: 20080331
  Receipt Date: 20080319
  Transmission Date: 20080703
  Serious: Yes (Other)
  Sender: FDA-Public Use
  Company Number: JP-MERCK-0803USA02612

PATIENT
  Age: 83 Year
  Sex: Female

DRUGS (9)
  1. FOSAMAX [Suspect]
     Indication: OSTEOPOROSIS
     Route: 048
     Dates: start: 20071212, end: 20080206
  2. WARFARIN POTASSIUM [Suspect]
     Route: 048
     Dates: start: 20071017, end: 20080206
  3. WARFARIN POTASSIUM [Suspect]
     Route: 048
     Dates: start: 20080207, end: 20080305
  4. WARFARIN POTASSIUM [Suspect]
     Route: 048
     Dates: start: 20080306
  5. PARIET [Concomitant]
     Route: 048
     Dates: start: 20071017
  6. ENALAPRIL MALEATE [Concomitant]
     Route: 048
     Dates: start: 20071017
  7. AMLODIN [Concomitant]
     Route: 048
     Dates: start: 20071017
  8. OPALMON [Concomitant]
     Route: 048
     Dates: start: 20071017
  9. ASPIRIN [Concomitant]
     Route: 048
     Dates: start: 20080206

REACTIONS (3)
  - DRUG INTERACTION [None]
  - INTERNATIONAL NORMALISED RATIO DECREASED [None]
  - THERAPEUTIC RESPONSE DECREASED [None]
